FAERS Safety Report 4554252-8 (Version None)
Quarter: 2004Q4

REPORT INFORMATION
  Report Type: 
  Country: None (occurrence: None)
  Receive Date: 20041222
  Receipt Date: 20040909
  Transmission Date: 20050328
  Serious: No
  Sender: FDA-Public Use
  Company Number: 208951

PATIENT
  Age: 67 Year
  Sex: Female
  Weight: 74.4 kg

DRUGS (5)
  1. AVASTIN [Suspect]
     Indication: COLON CANCER
     Dosage: 340 MG, Q2W, INTRAVENOUS
     Route: 042
     Dates: start: 20040330
  2. VERAPAMIL [Concomitant]
  3. FUROSEMIDE [Concomitant]
  4. IRON (IRON NOS) [Concomitant]
  5. SODIUM BICARBONATE IN PLASTIC CONTAINER [Concomitant]

REACTIONS (1)
  - PROTEINURIA [None]
